FAERS Safety Report 9051206 (Version 3)
Quarter: 2013Q2

REPORT INFORMATION
  Report Type: Report from Study
  Country: DE (occurrence: DE)
  Receive Date: 20130206
  Receipt Date: 20130415
  Transmission Date: 20140414
  Serious: Yes (Hospitalization)
  Sender: FDA-Public Use
  Company Number: DE-BRISTOL-MYERS SQUIBB COMPANY-17348400

PATIENT
  Age: 38 Year
  Sex: Male
  Weight: 63 kg

DRUGS (12)
  1. ERBITUX SOLN FOR INF [Suspect]
     Indication: COLORECTAL CANCER METASTATIC
     Dosage: 05DEC-05DEC12,400MG/M2?19DEC12-02JAN13,250MG/M2,1IN2WK?16JAN13-ONG,400MG/M2,1IN2WK
     Route: 042
     Dates: start: 20121205
  2. 5-FLUOROURACIL [Concomitant]
     Indication: COLORECTAL CANCER METASTATIC
     Dosage: 400MG/M2
     Route: 042
     Dates: start: 20121205
  3. OXALIPLATIN [Concomitant]
     Indication: COLORECTAL CANCER METASTATIC
     Route: 042
     Dates: start: 20121205
  4. CALCIUM FOLINATE [Concomitant]
     Indication: COLORECTAL CANCER METASTATIC
     Route: 042
     Dates: start: 20121205
  5. GRANISETRON [Concomitant]
     Indication: PREMEDICATION
     Dates: start: 20121205, end: 20121205
  6. CALCIUM [Concomitant]
     Indication: PREMEDICATION
     Dates: start: 20121219
  7. GLUCOSE [Concomitant]
     Indication: PREMEDICATION
     Dates: start: 20121219
  8. TAVOR [Concomitant]
     Indication: ANXIETY
     Dates: start: 20121208
  9. PANTOZOL [Concomitant]
     Indication: ANTACID THERAPY
     Dates: start: 20121208
  10. MOVICOL [Concomitant]
     Dosage: 1DF:3-6 SACHETS
  11. IBUPROFEN [Concomitant]
     Dosage: 1DF:600 UNITS NOS
  12. PASPERTIN [Concomitant]

REACTIONS (4)
  - Cachexia [Recovered/Resolved]
  - Oedema peripheral [Recovered/Resolved]
  - Dehydration [Recovered/Resolved]
  - General physical health deterioration [Recovered/Resolved]
